FAERS Safety Report 9818583 (Version 1)
Quarter: 2014Q1

REPORT INFORMATION
  Report Type: Spontaneous
  Country: US (occurrence: None)
  Receive Date: 20140114
  Receipt Date: 20140114
  Transmission Date: 20141002
  Serious: Yes (Death)
  Sender: FDA-Public Use
  Company Number: None

PATIENT
  Age: 66 Year
  Sex: Female

DRUGS (2)
  1. CLOZAPINE [Suspect]
     Indication: ABNORMAL BEHAVIOUR
     Dosage: 400  QD ORAL?YEARS
     Route: 048
  2. ZYPREXA [Suspect]
     Indication: ABNORMAL BEHAVIOUR
     Dosage: 12.5 MG  QD ORAL?YEARS
     Route: 048

REACTIONS (1)
  - Investigation [None]
